FAERS Safety Report 7972532-0 (Version None)
Quarter: 2011Q4

REPORT INFORMATION
  Report Type: 
  Country: None (occurrence: None)
  Receive Date: 20111209
  Receipt Date: 20111129
  Transmission Date: 20120403
  Serious: Yes (Other)
  Sender: FDA-Public Use
  Company Number: 1000025820

PATIENT
  Age: 40 Year
  Sex: Male

DRUGS (4)
  1. LITHIUM CARBONATE [Concomitant]
  2. OXYCONTIN (OXYCODONE HYDROHCLORIDE) (OXYCODONE HYDROCHLORIDE) [Concomitant]
  3. VIIBRYD [Suspect]
     Indication: DEPRESSION
     Dosage: 40 MG (40 MG, 1 IN 1 D), ORAL
     Route: 048
     Dates: start: 20110101, end: 20110101
  4. VIIBRYD [Suspect]
     Indication: DEPRESSION
     Dosage: SEE IMAGE
     Route: 048
     Dates: start: 20110101, end: 20110101

REACTIONS (2)
  - ASPARTATE AMINOTRANSFERASE INCREASED [None]
  - ALANINE AMINOTRANSFERASE INCREASED [None]
